FAERS Safety Report 5889993-3 (Version None)
Quarter: 2008Q3

REPORT INFORMATION
  Report Type: 
  Country: None (occurrence: None)
  Receive Date: 20080919
  Receipt Date: 20080911
  Transmission Date: 20090109
  Serious: Yes (Other)
  Sender: FDA-Public Use
  Company Number: US-PFIZER INC-2008066852

PATIENT
  Sex: Female
  Weight: 68.5 kg

DRUGS (8)
  1. CHANTIX [Suspect]
     Indication: TOBACCO ABUSE
     Dosage: TEXT:0.5 AS DIRECTED
     Dates: start: 20080401, end: 20080501
  2. IMDUR [Concomitant]
     Dates: end: 20080101
  3. CARDURA [Concomitant]
  4. ZOCOR [Concomitant]
  5. COREG [Concomitant]
  6. PLAVIX [Concomitant]
  7. ACETYL SALICYLIC ACID COMPOUND TAB [Concomitant]
  8. LOVAZA [Concomitant]

REACTIONS (4)
  - CORONARY ARTERY OCCLUSION [None]
  - HEART RATE ABNORMAL [None]
  - HEART RATE DECREASED [None]
  - MYOCARDIAL INFARCTION [None]
